FAERS Safety Report 8952649 (Version 1)
Quarter: 2012Q4

REPORT INFORMATION
  Report Type: 
  Country: AE (occurrence: AE)
  Receive Date: 20121205
  Receipt Date: 20121205
  Transmission Date: 20130627
  Serious: Yes (Other)
  Sender: FDA-Public Use
  Company Number: AE-US-EMD SERONO, INC.-7178544

PATIENT
  Age: 31 None
  Sex: Female
  Weight: 88 kg

DRUGS (1)
  1. REBIF [Suspect]
     Indication: RELAPSING-REMITTING MULTIPLE SCLEROSIS
     Route: 058
     Dates: start: 20120915, end: 20121109

REACTIONS (2)
  - Lower respiratory tract infection [Unknown]
  - Leukopenia [Recovering/Resolving]
